FAERS Safety Report 9995837 (Version 1)
Quarter: 2014Q1

REPORT INFORMATION
  Report Type: Spontaneous
  Country: US (occurrence: None)
  Receive Date: 20140218
  Receipt Date: 20140218
  Transmission Date: 20141002
  Serious: Yes (Other)
  Sender: FDA-Public Use
  Company Number: 1000052587

PATIENT
  Age: 64 Year
  Sex: Female

DRUGS (2)
  1. VIIBRYD [Suspect]
     Indication: DEPRESSION
     Route: 048
     Dates: start: 201312, end: 201312
  2. METOPROLOL (METOPROLOL) (METOPROLOL) [Concomitant]

REACTIONS (1)
  - Blood pressure increased [None]
